FAERS Safety Report 18339331 (Version 1)
Quarter: 2020Q4

REPORT INFORMATION
  Report Type: Spontaneous
  Country: US (occurrence: US)
  Receive Date: 20201002
  Receipt Date: 20201002
  Transmission Date: 20210113
  Serious: Yes (Other)
  Sender: FDA-Public Use
  Company Number: None

PATIENT
  Age: 63 Year
  Sex: Female
  Weight: 86 kg

DRUGS (2)
  1. TOLVAPTAN [Suspect]
     Active Substance: TOLVAPTAN
     Indication: HYPONATRAEMIA
     Route: 048
     Dates: start: 20200927, end: 20201001
  2. TOLVAPTAN [Concomitant]
     Active Substance: TOLVAPTAN

REACTIONS (2)
  - Unresponsive to stimuli [None]
  - Asthenia [None]

NARRATIVE: CASE EVENT DATE: 20201001
